FAERS Safety Report 7756270-5 (Version None)
Quarter: 2011Q3

REPORT INFORMATION
  Report Type: 
  Country: None (occurrence: None)
  Receive Date: 20110909
  Receipt Date: 20110906
  Transmission Date: 20111222
  Serious: Yes (Other)
  Sender: FDA-Public Use
  Company Number: 2011029022

PATIENT
  Sex: Female
  Weight: 89.3586 kg

DRUGS (2)
  1. ZEMAIRA [Suspect]
     Indication: ALPHA-1 ANTI-TRYPSIN DEFICIENCY
     Dosage: SEE IMAGE: INTRAVENOUS
     Route: 042
     Dates: start: 20110617
  2. ZEMAIRA [Suspect]
     Indication: ALPHA-1 ANTI-TRYPSIN DEFICIENCY
     Dosage: SEE IMAGE: INTRAVENOUS
     Route: 042
     Dates: start: 20110429

REACTIONS (6)
  - PYREXIA [None]
  - RASH [None]
  - PETECHIAE [None]
  - PRODUCT CONTAMINATION MICROBIAL [None]
  - EPSTEIN-BARR VIRUS TEST POSITIVE [None]
  - INFECTIOUS MONONUCLEOSIS [None]
